FAERS Safety Report 8094198-4 (Version None)
Quarter: 2012Q1

REPORT INFORMATION
  Report Type: 
  Country: None (occurrence: None)
  Receive Date: 20120130
  Receipt Date: 20120130
  Transmission Date: 20120608
  Serious: Yes (Life-Threatening)
  Sender: FDA-Public Use
  Company Number: None

PATIENT
  Sex: Male
  Weight: 68.038 kg

DRUGS (3)
  1. LEXAPRO [Interacting]
  2. RISPERDAL [Suspect]
  3. SEROQUEL [Concomitant]

REACTIONS (4)
  - WITHDRAWAL SYNDROME [None]
  - SENSORY DISTURBANCE [None]
  - ELECTRIC SHOCK [None]
  - EYE MOVEMENT DISORDER [None]
